FAERS Safety Report 9785711 (Version 1)
Quarter: 2013Q4

REPORT INFORMATION
  Report Type: Report from Study
  Country: US (occurrence: US)
  Receive Date: 20131227
  Receipt Date: 20131227
  Transmission Date: 20140711
  Serious: Yes (Hospitalization)
  Sender: FDA-Public Use
  Company Number: US-009507513-1312USA008255

PATIENT
  Age: 64 Year
  Sex: Male
  Weight: 90.25 kg

DRUGS (3)
  1. BOCEPREVIR [Suspect]
     Indication: HEPATITIS C
     Dosage: 800 MG, TID
     Dates: end: 20130430
  2. REBETOL [Suspect]
     Indication: HEPATITIS C
     Dosage: 600 MG, QD
     Route: 048
     Dates: end: 20130430
  3. PEGASYS [Suspect]
     Indication: CHRONIC HEPATITIS C
     Dosage: 180 MICROGRAM, QW
     Dates: start: 20130114, end: 20130430

REACTIONS (1)
  - Depression [Recovered/Resolved]
